FAERS Safety Report 15145374 (Version 2)
Quarter: 2018Q3

REPORT INFORMATION
  Report Type: Other
  Country: US (occurrence: US)
  Receive Date: 20180713
  Receipt Date: 20180831
  Transmission Date: 20181010
  Serious: No
  Sender: FDA-Public Use
  Company Number: US-INTERCEPT-PMOCA2018000674

PATIENT

DRUGS (9)
  1. OCALIVA [Suspect]
     Active Substance: OBETICHOLIC ACID
     Dosage: 10 MG, QD
     Route: 048
     Dates: start: 20170512
  2. OCALIVA [Suspect]
     Active Substance: OBETICHOLIC ACID
     Indication: PRIMARY BILIARY CHOLANGITIS
     Dosage: 5 MG, QD
     Route: 048
     Dates: start: 20161011
  3. OCALIVA [Suspect]
     Active Substance: OBETICHOLIC ACID
     Dosage: 5 MG, QD
     Route: 048
     Dates: start: 20170925, end: 20180315
  4. VITAMIN D [Concomitant]
     Active Substance: CHOLECALCIFEROL
  5. ATARAX [Concomitant]
     Active Substance: HYDROXYZINE HYDROCHLORIDE
     Dosage: 10 UNK, UNK
  6. CALCIUM [Concomitant]
     Active Substance: CALCIUM
  7. URSODEOXYCHOLIC ACID [Concomitant]
     Active Substance: URSODIOL
     Dosage: 800 UNK, QD
  8. PAXIL [Concomitant]
     Active Substance: PAROXETINE HYDROCHLORIDE
     Dosage: 10 MG, QD
  9. AMLACTIN [Concomitant]
     Active Substance: AMMONIUM LACTATE

REACTIONS (7)
  - Arthralgia [Recovering/Resolving]
  - Insomnia [Recovering/Resolving]
  - Gait disturbance [Unknown]
  - Pruritus [Recovering/Resolving]
  - Blood alkaline phosphatase abnormal [Unknown]
  - Chills [Recovering/Resolving]
  - Fatigue [Recovering/Resolving]

NARRATIVE: CASE EVENT DATE: 201712
